FAERS Safety Report 15125495 (Version 2)
Quarter: 2018Q3

REPORT INFORMATION
  Report Type: Spontaneous
  Country: US (occurrence: US)
  Receive Date: 20180710
  Receipt Date: 20180724
  Transmission Date: 20181010
  Serious: No
  Sender: FDA-Public Use
  Company Number: US-009507513-1806USA010532

PATIENT
  Age: 17 Year
  Sex: Female

DRUGS (1)
  1. NEXPLANON [Suspect]
     Active Substance: ETONOGESTREL
     Indication: CONTRACEPTION
     Dosage: 1 IMPLANT, EVERY THREE YEARS IN LEFT ARM
     Route: 059
     Dates: start: 20160831

REACTIONS (2)
  - Movement disorder [Unknown]
  - Implant site pain [Unknown]

NARRATIVE: CASE EVENT DATE: 201801
